FAERS Safety Report 8607879 (Version 4)
Quarter: 2013Q3

REPORT INFORMATION
  Report Type: Spontaneous
  Country: US (occurrence: US)
  Receive Date: 20120611
  Receipt Date: 20130813
  Transmission Date: 20140515
  Serious: Yes (Hospitalization, Other)
  Sender: FDA-Public Use
  Company Number: US-ASTRAZENECA-2012SE35161

PATIENT
  Age: 784 Month
  Sex: Female
  Weight: 120.2 kg

DRUGS (24)
  1. NEXIUM [Suspect]
     Indication: GASTROOESOPHAGEAL REFLUX DISEASE
     Route: 048
     Dates: start: 20080104
  2. NEXIUM [Suspect]
     Indication: GASTROOESOPHAGEAL REFLUX DISEASE
     Route: 048
     Dates: start: 20080408, end: 201007
  3. NEXIUM [Suspect]
     Indication: GASTROOESOPHAGEAL REFLUX DISEASE
     Route: 048
     Dates: start: 20080408
  4. PEPTO BISMOL [Concomitant]
     Indication: GASTRIC DISORDER
  5. PAXIL [Concomitant]
     Route: 048
     Dates: start: 20050817
  6. SYNTHROID [Concomitant]
     Dates: start: 20060523
  7. SINGULAIR [Concomitant]
     Dates: start: 20060616
  8. ZESTRIL [Concomitant]
     Dates: start: 20060616
  9. SERTRALINE [Concomitant]
     Dates: start: 20101019
  10. SERTRALINE [Concomitant]
     Dates: start: 20120515
  11. TRAZODONE [Concomitant]
     Dates: start: 20110929
  12. CLARITIN-D [Concomitant]
     Indication: SINUSITIS
  13. CLARITIN-D [Concomitant]
     Indication: MULTIPLE ALLERGIES
  14. HYDROCODONE-ACETAMINOPHEN [Concomitant]
     Dosage: 5/325 MG
     Dates: start: 20120809
  15. OXYBUTYNIN [Concomitant]
     Dates: start: 20121101
  16. IBANDRONATE [Concomitant]
     Dosage: 150 MG Q. MONTH AT LEAST 60 MINUTES
     Dates: start: 20091021
  17. DICLOFENAC [Concomitant]
     Dates: start: 20091021
  18. IBUPROFEN [Concomitant]
     Dates: start: 20091008
  19. ZYRTEC [Concomitant]
     Dates: start: 20091008
  20. HYDROCHLOROTHIAZIDE [Concomitant]
     Dates: start: 20070810
  21. RABEPRAZOLE [Concomitant]
     Dates: start: 20070129
  22. AUGMENTIN XR [Concomitant]
     Dosage: 1000/62.5 MG ,BID
  23. CO-TRIMOXAZOLE [Concomitant]
     Dosage: 800/160 MG, BID
     Dates: start: 20070111
  24. OXYCONTIN [Concomitant]
     Dates: start: 20090803

REACTIONS (20)
  - Cerebrovascular accident [Unknown]
  - Upper limb fracture [Unknown]
  - Humerus fracture [Unknown]
  - Fibula fracture [Unknown]
  - Foot fracture [Unknown]
  - Arthropathy [Unknown]
  - Intervertebral disc compression [Unknown]
  - Intervertebral disc displacement [Unknown]
  - Osteoarthritis [Unknown]
  - Fall [Unknown]
  - Osteoporosis [Unknown]
  - Bone disorder [Unknown]
  - Arthritis [Unknown]
  - Osteopenia [Unknown]
  - Vitamin D deficiency [Unknown]
  - Multiple injuries [Unknown]
  - Vitamin B complex deficiency [Unknown]
  - Ankle fracture [Unknown]
  - Intervertebral disc degeneration [Unknown]
  - Depression [Unknown]
